FAERS Safety Report 5072262-1 (Version None)
Quarter: 2006Q3

REPORT INFORMATION
  Report Type: 
  Country: None (occurrence: None)
  Receive Date: 20060807
  Receipt Date: 20060728
  Transmission Date: 20061208
  Serious: Yes (Death)
  Sender: FDA-Public Use
  Company Number: FR-JNJFOC-20060602488

PATIENT
  Age: 46 Year
  Sex: Female

DRUGS (6)
  1. CAELYX [Suspect]
     Indication: OVARIAN CANCER
     Route: 042
  2. DURAGESIC-100 [Concomitant]
     Route: 062
  3. PKB [Concomitant]
  4. PRIMPERAN TAB [Concomitant]
  5. DAFALGAN [Concomitant]
     Route: 048
  6. TEMESTA [Concomitant]

REACTIONS (6)
  - ASPIRATION [None]
  - INTESTINAL OBSTRUCTION [None]
  - OVARIAN CANCER [None]
  - RENAL FAILURE [None]
  - SEPTIC SHOCK [None]
  - THROMBOCYTOPENIA [None]
